FAERS Safety Report 8877511 (Version 1)
Quarter: 2012Q4

REPORT INFORMATION
  Report Type: 
  Country: BR (occurrence: BR)
  Receive Date: 20121024
  Receipt Date: 20121024
  Transmission Date: 20130627
  Serious: Yes (Other)
  Sender: FDA-Public Use
  Company Number: BR-PFIZER INC-2012258980

PATIENT
  Age: 42 Year
  Sex: Female
  Weight: 56 kg

DRUGS (2)
  1. CHAMPIX [Suspect]
     Indication: SMOKING CESSATION THERAPY
     Dosage: UNK
     Route: 048
     Dates: start: 20120930, end: 2012
  2. CHAMPIX [Suspect]
     Dosage: 1 mg (one tablet), 2x/day
     Route: 048
     Dates: start: 2012, end: 20121011

REACTIONS (6)
  - Hypersensitivity [Recovering/Resolving]
  - Rash macular [Not Recovered/Not Resolved]
  - Pruritus [Recovering/Resolving]
  - Blister [Recovering/Resolving]
  - Rash [Recovering/Resolving]
  - Crying [Not Recovered/Not Resolved]
